FAERS Safety Report 4474439-2 (Version None)
Quarter: 2004Q4

REPORT INFORMATION
  Report Type: 
  Country: None (occurrence: None)
  Receive Date: 20041012
  Receipt Date: 20040924
  Transmission Date: 20050328
  Serious: Yes (Life-Threatening, Hospitalization)
  Sender: FDA-Public Use
  Company Number: 2004-BP-08455NB

PATIENT
  Age: 89 Year
  Sex: Female

DRUGS (4)
  1. MEXITIL [Suspect]
     Indication: VENTRICULAR ARRHYTHMIA
     Dosage: 100 MG (50 MG), PO
     Route: 048
     Dates: end: 20040901
  2. LASIX [Concomitant]
  3. NITRODERM TTS (GLYCERYL TRINITRATE ) (TTS) [Concomitant]
  4. TANATRIL (IMIDAPRIL HYDROCHLORIDE) (TA) [Concomitant]

REACTIONS (1)
  - TORSADE DE POINTES [None]
